FAERS Safety Report 5258855-7 (Version None)
Quarter: 2007Q1

REPORT INFORMATION
  Report Type: 
  Country: None (occurrence: None)
  Receive Date: 20070306
  Receipt Date: 20070306
  Transmission Date: 20070707
  Serious: Yes (Other)
  Sender: FDA-Public Use
  Company Number: None

PATIENT
  Age: 71 Year
  Sex: Female
  Weight: 57.1532 kg

DRUGS (1)
  1. REGLAN [Suspect]
     Indication: GASTROOESOPHAGEAL REFLUX DISEASE
     Dosage: 10 MG 3XDAILY PO
     Route: 048
     Dates: start: 20060808, end: 20070129

REACTIONS (3)
  - DEPRESSION [None]
  - INSOMNIA [None]
  - MENTAL DISORDER [None]
